FAERS Safety Report 8202372-9 (Version None)
Quarter: 2012Q1

REPORT INFORMATION
  Report Type: 
  Country: None (occurrence: None)
  Receive Date: 20120312
  Receipt Date: 20111012
  Transmission Date: 20120608
  Serious: No
  Sender: FDA-Public Use
  Company Number: US-ABBOTT-11P-163-0864297-00

PATIENT
  Sex: Female
  Weight: 55.388 kg

DRUGS (2)
  1. DEPAKOTE [Suspect]
     Indication: ANXIETY
     Dates: start: 20110801
  2. DEPAKOTE [Suspect]
     Indication: BIPOLAR DISORDER
     Dates: start: 19980101, end: 20110801

REACTIONS (8)
  - NERVOUSNESS [None]
  - APHAGIA [None]
  - INSOMNIA [None]
  - INCORRECT STORAGE OF DRUG [None]
  - ANXIETY [None]
  - PRODUCT QUALITY ISSUE [None]
  - DRUG INEFFECTIVE [None]
  - MANIA [None]
